FAERS Safety Report 5766820-6 (Version None)
Quarter: 2008Q2

REPORT INFORMATION
  Report Type: 
  Country: None (occurrence: None)
  Receive Date: 20080612
  Receipt Date: 20080602
  Transmission Date: 20081010
  Serious: Yes (Hospitalization, Other)
  Sender: FDA-Public Use
  Company Number: FR-JNJFOC-20080407654

PATIENT
  Age: 37 Year
  Sex: Female
  Weight: 100 kg

DRUGS (4)
  1. REMICADE [Suspect]
     Indication: ANKYLOSING SPONDYLITIS
     Dosage: 6 INFUSIONS
     Route: 042
  2. NORDETTE-21 [Suspect]
     Indication: ORAL CONTRACEPTION
     Route: 048
  3. SKENAN [Concomitant]
  4. BUTAZOLIDINE [Concomitant]

REACTIONS (3)
  - ANKYLOSING SPONDYLITIS [None]
  - OVARIAN CYST [None]
  - PULMONARY EMBOLISM [None]
